FAERS Safety Report 15129580 (Version 1)
Quarter: 2018Q3

REPORT INFORMATION
  Report Type: Spontaneous
  Country: US (occurrence: US)
  Receive Date: 20180615
  Receipt Date: 20180615
  Transmission Date: 20181010
  Serious: Yes (Other)
  Sender: FDA-Public Use
  Company Number: None

PATIENT
  Age: 50 Year
  Sex: Female
  Weight: 67.2 kg

DRUGS (4)
  1. DEXAMETHASONE 10MG INJ [Concomitant]
     Dates: start: 20180424, end: 20180424
  2. DIPHENHYDRAMINE 25MG INJ [Concomitant]
     Dates: start: 20180424, end: 20180424
  3. VITAMIN B12 1000MCG INJ [Concomitant]
     Dates: start: 20180424, end: 20180424
  4. VENOFER [Suspect]
     Active Substance: IRON SUCROSE
     Indication: ANAEMIA
     Route: 041
     Dates: start: 20141117, end: 20180424

REACTIONS (1)
  - Pruritus [None]

NARRATIVE: CASE EVENT DATE: 20180424
